FAERS Safety Report 24579197 (Version 4)
Quarter: 2024Q4

REPORT INFORMATION
  Report Type: Spontaneous
  Country: AR (occurrence: AR)
  Receive Date: 20241105
  Receipt Date: 20241225
  Transmission Date: 20250115
  Serious: Yes (Death, Hospitalization, Other)
  Sender: ROCHE
  Company Number: AR-ROCHE-10000118680

PATIENT
  Age: 26 Year
  Sex: Male
  Weight: 56 kg

DRUGS (20)
  1. RITUXIMAB [Suspect]
     Active Substance: RITUXIMAB
     Indication: B-cell lymphoma
     Dosage: DOSE AND FREQUENCY WERE NOT REPORTED
     Route: 065
     Dates: start: 20231027
  2. RITUXIMAB [Suspect]
     Active Substance: RITUXIMAB
     Dosage: 1ST SYSTEMIC TREATMENT R-DAEPOCH
     Route: 065
     Dates: start: 20231117, end: 20240109
  3. RITUXIMAB [Suspect]
     Active Substance: RITUXIMAB
     Dosage: 2ND SYSTEMIC TREATMENT R-DHAP
     Route: 065
     Dates: start: 20240205, end: 20240301
  4. RITUXIMAB [Suspect]
     Active Substance: RITUXIMAB
     Dosage: 3RD SYSTEMIC TREATMENT R-GEMOX
     Route: 065
     Dates: start: 20240326, end: 20240604
  5. CYCLOPHOSPHAMIDE [Concomitant]
     Active Substance: CYCLOPHOSPHAMIDE
     Indication: B-cell lymphoma
     Dates: start: 20231027
  6. CYCLOPHOSPHAMIDE [Concomitant]
     Active Substance: CYCLOPHOSPHAMIDE
     Dosage: 1ST SYSTEMIC TREATMENT R-DAEPOCH
     Route: 065
     Dates: start: 20231117, end: 20240109
  7. Corticosteroidson [Concomitant]
     Indication: B-cell lymphoma
     Dates: start: 20231027
  8. ETOPOSIDE [Concomitant]
     Active Substance: ETOPOSIDE
     Indication: B-cell lymphoma
     Dosage: 1ST SYSTEMIC TREATMENT R-DAEPOCH
     Route: 065
     Dates: start: 20231117, end: 20240109
  9. PREDNISONE [Concomitant]
     Active Substance: PREDNISONE
     Indication: B-cell lymphoma
     Dosage: 1ST SYSTEMIC TREATMENT R-DAEPOCH
     Route: 065
     Dates: start: 20231117, end: 20240109
  10. VINCRISTINE [Concomitant]
     Active Substance: VINCRISTINE
     Indication: B-cell lymphoma
     Dosage: 1ST SYSTEMIC TREATMENT R-DAEPOCH
     Route: 065
     Dates: start: 20231117, end: 20240109
  11. DOXORUBICIN [Concomitant]
     Active Substance: DOXORUBICIN
     Indication: B-cell lymphoma
     Dosage: 1ST SYSTEMIC TREATMENT R-DAEPOCH
     Route: 065
     Dates: start: 20231117, end: 20240109
  12. GEMCITABINE [Concomitant]
     Active Substance: GEMCITABINE
     Indication: B-cell lymphoma
     Dosage: 3RD SYSTEMIC TREATMENT R-GEMOX
     Route: 065
     Dates: start: 20240326, end: 20240604
  13. OXALIPLATIN [Concomitant]
     Active Substance: OXALIPLATIN
     Indication: B-cell lymphoma
     Dosage: 3RD SYSTEMIC TREATMENT R-GEMOX
     Route: 065
     Dates: start: 20240326, end: 20240604
  14. PEMBROLIZUMAB [Concomitant]
     Active Substance: PEMBROLIZUMAB
     Indication: B-cell lymphoma
     Dosage: 4TH SYSTEMIC TREATMENT
     Route: 065
     Dates: start: 20240607, end: 20240628
  15. PEMBROLIZUMAB [Concomitant]
     Active Substance: PEMBROLIZUMAB
     Dosage: 5TH SYSTEMIC TREATMENT BRENTUXIMAB-PEMBROLIZUMAB
     Route: 065
     Dates: start: 20240712, end: 20240913
  16. BRENTUXIMAB [Concomitant]
     Active Substance: BRENTUXIMAB
     Indication: B-cell lymphoma
     Dosage: 5TH SYSTEMIC TREATMENT BRENTUXIMAB-PEMBROLIZUMAB
     Route: 065
     Dates: start: 20240712, end: 20240913
  17. DEXAMETHASONE [Concomitant]
     Active Substance: DEXAMETHASONE
     Indication: B-cell lymphoma
     Dosage: 2ND SYSTEMIC TREATMENT R-DHAP
     Route: 065
     Dates: start: 20240205, end: 20240301
  18. CYTARABINE [Concomitant]
     Active Substance: CYTARABINE
     Indication: B-cell lymphoma
     Dosage: 2ND SYSTEMIC TREATMENT R-DHAP
     Route: 065
     Dates: start: 20240205, end: 20240301
  19. CISPLATIN [Concomitant]
     Active Substance: CISPLATIN
     Indication: B-cell lymphoma
     Dosage: 2ND SYSTEMIC TREATMENT R-DHAP
     Route: 065
     Dates: start: 20240205, end: 20240301
  20. MEPREDNISONE [Concomitant]
     Active Substance: MEPREDNISONE

REACTIONS (33)
  - Disease progression [Unknown]
  - Back pain [Unknown]
  - Weight decreased [Unknown]
  - Jaundice [Unknown]
  - Pancreatic neoplasm [Unknown]
  - Renal neoplasm [Unknown]
  - Normochromic normocytic anaemia [Unknown]
  - Hepatic enzyme increased [Unknown]
  - Transaminases increased [Unknown]
  - Abdominal pain [Unknown]
  - Haematuria [Unknown]
  - Liver function test abnormal [Unknown]
  - Upper gastrointestinal haemorrhage [Unknown]
  - Liver function test increased [Unknown]
  - Pneumocystis jirovecii pneumonia [Unknown]
  - Cachexia [Unknown]
  - Blood chloride decreased [Unknown]
  - White blood cell count decreased [Unknown]
  - Haemoglobin decreased [Unknown]
  - Haematocrit decreased [Unknown]
  - Blood creatinine increased [Unknown]
  - Blood bilirubin increased [Unknown]
  - Bilirubin conjugated increased [Unknown]
  - Aspartate aminotransferase increased [Unknown]
  - Alanine aminotransferase increased [Unknown]
  - Blood sodium decreased [Unknown]
  - Pyrexia [Recovered/Resolved]
  - Dyspnoea [Recovered/Resolved]
  - Renal failure [Recovered/Resolved]
  - Dyspepsia [Recovered/Resolved]
  - Cholangitis [Unknown]
  - Death [Fatal]
  - Fungal infection [Unknown]

NARRATIVE: CASE EVENT DATE: 20240112
